FAERS Safety Report 24092995 (Version 1)
Quarter: 2024Q3

REPORT INFORMATION
  Report Type: Spontaneous
  Country: DE (occurrence: DE)
  Receive Date: 20240715
  Receipt Date: 20240715
  Transmission Date: 20241016
  Serious: Yes (Other)
  Sender: SANDOZ
  Company Number: DE-AMGEN-DEUNI2018021861

PATIENT
  Age: 62 Year
  Sex: Male
  Weight: 91 kg

DRUGS (90)
  1. CARFILZOMIB [Suspect]
     Active Substance: CARFILZOMIB
     Dosage: 56 UNK (27 MG/M2, UNK)
     Route: 042
     Dates: start: 20170530
  2. CARFILZOMIB [Suspect]
     Active Substance: CARFILZOMIB
     Indication: Plasma cell myeloma
     Dosage: 20 MG/M2, UNK
     Route: 042
     Dates: start: 20170502, end: 20170517
  3. CARFILZOMIB [Suspect]
     Active Substance: CARFILZOMIB
     Dosage: 20 MG/M2, UNK
     Route: 042
     Dates: start: 20170509, end: 20170510
  4. CARFILZOMIB [Suspect]
     Active Substance: CARFILZOMIB
     Dosage: 20 MG/M2, UNK
     Route: 042
     Dates: start: 20170516, end: 20170517
  5. CARFILZOMIB [Suspect]
     Active Substance: CARFILZOMIB
     Dosage: 27 MG/M2, UNK
     Route: 042
     Dates: start: 20170530, end: 20170809
  6. CARFILZOMIB [Suspect]
     Active Substance: CARFILZOMIB
     Dosage: 27 MG/M2, UNK
     Route: 042
     Dates: start: 20170606, end: 20170607
  7. CARFILZOMIB [Suspect]
     Active Substance: CARFILZOMIB
     Dosage: 27 MG/M2, UNK
     Route: 042
     Dates: start: 20170613, end: 20170614
  8. CARFILZOMIB [Suspect]
     Active Substance: CARFILZOMIB
     Dosage: 27 MG/M2, UNK
     Route: 042
     Dates: start: 20170627, end: 20170628
  9. CARFILZOMIB [Suspect]
     Active Substance: CARFILZOMIB
     Dosage: 27 MG/M2, UNK
     Route: 042
     Dates: start: 20170704, end: 20170705
  10. CARFILZOMIB [Suspect]
     Active Substance: CARFILZOMIB
     Dosage: 27 MG/M2, UNK
     Route: 042
     Dates: start: 20170711, end: 20170712
  11. CARFILZOMIB [Suspect]
     Active Substance: CARFILZOMIB
     Dosage: 27 MG/M2, UNK
     Route: 042
     Dates: start: 20170801, end: 20170802
  12. CARFILZOMIB [Suspect]
     Active Substance: CARFILZOMIB
     Dosage: 27 MG/M2, UNK
     Route: 042
     Dates: start: 20170808, end: 20170809
  13. CARFILZOMIB [Suspect]
     Active Substance: CARFILZOMIB
     Dosage: 56 MG/M2, UNK
     Route: 042
     Dates: start: 20170911, end: 20170912
  14. CARFILZOMIB [Suspect]
     Active Substance: CARFILZOMIB
     Dosage: 56 MG/M2, UNK
     Route: 042
     Dates: start: 20170918, end: 20170919
  15. CARFILZOMIB [Suspect]
     Active Substance: CARFILZOMIB
     Dosage: 56 MG/M2, UNK
     Route: 042
     Dates: start: 20170925, end: 20170926
  16. CARFILZOMIB [Suspect]
     Active Substance: CARFILZOMIB
     Dosage: 56 MG/M2, UNK
     Route: 042
     Dates: start: 20171009, end: 20171010
  17. CARFILZOMIB [Suspect]
     Active Substance: CARFILZOMIB
     Dosage: 56 MG/M2, UNK
     Route: 042
     Dates: start: 20171016, end: 20171016
  18. CARFILZOMIB [Suspect]
     Active Substance: CARFILZOMIB
     Dosage: 56 MG/M2, UNK
     Route: 042
     Dates: start: 20171023, end: 20171024
  19. CARFILZOMIB [Suspect]
     Active Substance: CARFILZOMIB
     Dosage: 56 MG/M2, UNK
     Route: 042
     Dates: start: 20171106, end: 20171107
  20. CARFILZOMIB [Suspect]
     Active Substance: CARFILZOMIB
     Dosage: 56 MG/M2, UNK
     Route: 042
     Dates: start: 20171113, end: 20171114
  21. CARFILZOMIB [Suspect]
     Active Substance: CARFILZOMIB
     Dosage: 56 MG/M2, UNK
     Route: 042
     Dates: start: 20171120, end: 20171121
  22. CARFILZOMIB [Suspect]
     Active Substance: CARFILZOMIB
     Dosage: 56 MG/M2, UNK
     Route: 042
     Dates: start: 20171204, end: 20171205
  23. CARFILZOMIB [Suspect]
     Active Substance: CARFILZOMIB
     Dosage: 56 MG/M2, UNK
     Route: 042
     Dates: start: 20171211, end: 20171212
  24. CARFILZOMIB [Suspect]
     Active Substance: CARFILZOMIB
     Dosage: 56 MG/M2, UNK
     Route: 042
     Dates: start: 20171218, end: 20171219
  25. CARFILZOMIB [Suspect]
     Active Substance: CARFILZOMIB
     Dosage: 56 MG/M2, UNK
     Route: 042
     Dates: start: 20180108, end: 20180109
  26. CARFILZOMIB [Suspect]
     Active Substance: CARFILZOMIB
     Dosage: 56 MG/M2, UNK
     Route: 042
     Dates: start: 20180115, end: 20180116
  27. CARFILZOMIB [Suspect]
     Active Substance: CARFILZOMIB
     Dosage: 56 MG/M2, UNK
     Route: 042
     Dates: start: 20180122, end: 20180123
  28. CARFILZOMIB [Suspect]
     Active Substance: CARFILZOMIB
     Dosage: 56 MG/M2, UNK
     Route: 042
     Dates: start: 20180205, end: 20180206
  29. CARFILZOMIB [Suspect]
     Active Substance: CARFILZOMIB
     Dosage: 56 MG/M2, UNK
     Route: 042
     Dates: start: 20180212, end: 20180213
  30. CARFILZOMIB [Suspect]
     Active Substance: CARFILZOMIB
     Dosage: 56 MG/M2, UNK
     Route: 042
     Dates: start: 20180219, end: 20180220
  31. CARFILZOMIB [Suspect]
     Active Substance: CARFILZOMIB
     Dosage: 56 MG/M2, UNK
     Route: 042
     Dates: start: 20180305, end: 20180306
  32. CARFILZOMIB [Suspect]
     Active Substance: CARFILZOMIB
     Dosage: 56 MG/M2, UNK
     Route: 042
     Dates: start: 20180312, end: 20180313
  33. CARFILZOMIB [Suspect]
     Active Substance: CARFILZOMIB
     Dosage: 56 MG/M2, UNK
     Route: 042
     Dates: start: 20180409
  34. CARFILZOMIB [Suspect]
     Active Substance: CARFILZOMIB
     Dosage: UNK
     Route: 065
  35. CARFILZOMIB [Suspect]
     Active Substance: CARFILZOMIB
     Dosage: UNK
     Route: 065
  36. CARFILZOMIB [Suspect]
     Active Substance: CARFILZOMIB
     Dosage: UNK
     Route: 065
  37. DEXAMETHASONE [Suspect]
     Active Substance: DEXAMETHASONE
     Indication: Plasma cell myeloma
     Dosage: 40MG (20 MG, UNK)
     Route: 065
     Dates: start: 20170911
  38. DEXAMETHASONE [Suspect]
     Active Substance: DEXAMETHASONE
     Dosage: 20 MG, UNK
     Route: 065
     Dates: start: 20170911, end: 20170912
  39. DEXAMETHASONE [Suspect]
     Active Substance: DEXAMETHASONE
     Dosage: 20 MG, UNK
     Route: 065
     Dates: start: 20170918, end: 20170919
  40. DEXAMETHASONE [Suspect]
     Active Substance: DEXAMETHASONE
     Dosage: 20 MG, UNK
     Route: 065
     Dates: start: 20170925, end: 20170926
  41. DEXAMETHASONE [Suspect]
     Active Substance: DEXAMETHASONE
     Dosage: 20 MG, UNK
     Route: 065
     Dates: start: 20171002, end: 20171003
  42. DEXAMETHASONE [Suspect]
     Active Substance: DEXAMETHASONE
     Dosage: 20 MG, UNK
     Route: 065
     Dates: start: 20171009, end: 20171010
  43. DEXAMETHASONE [Suspect]
     Active Substance: DEXAMETHASONE
     Dosage: 20 MG, UNK
     Route: 065
     Dates: start: 20171016, end: 20171017
  44. DEXAMETHASONE [Suspect]
     Active Substance: DEXAMETHASONE
     Dosage: 20 MG, UNK
     Route: 065
     Dates: start: 20171023, end: 20171024
  45. DEXAMETHASONE [Suspect]
     Active Substance: DEXAMETHASONE
     Dosage: 20 MG, UNK
     Route: 065
     Dates: start: 20171030, end: 20171031
  46. DEXAMETHASONE [Suspect]
     Active Substance: DEXAMETHASONE
     Dosage: 20 MG, UNK
     Route: 065
     Dates: start: 20171106, end: 20171107
  47. DEXAMETHASONE [Suspect]
     Active Substance: DEXAMETHASONE
     Dosage: 20 MG, UNK
     Route: 065
     Dates: start: 20171113, end: 20171114
  48. DEXAMETHASONE [Suspect]
     Active Substance: DEXAMETHASONE
     Dosage: 20 MG, UNK
     Route: 065
     Dates: start: 20171120, end: 20171121
  49. DEXAMETHASONE [Suspect]
     Active Substance: DEXAMETHASONE
     Dosage: 20 MG, UNK
     Route: 065
     Dates: start: 20171127, end: 20171128
  50. DEXAMETHASONE [Suspect]
     Active Substance: DEXAMETHASONE
     Dosage: 20 MG, UNK
     Route: 065
     Dates: start: 20171204, end: 20171205
  51. DEXAMETHASONE [Suspect]
     Active Substance: DEXAMETHASONE
     Dosage: 20 MG, UNK
     Route: 065
     Dates: start: 20171211, end: 20171212
  52. DEXAMETHASONE [Suspect]
     Active Substance: DEXAMETHASONE
     Dosage: 20 MG, UNK
     Route: 065
     Dates: start: 20171218, end: 20171219
  53. DEXAMETHASONE [Suspect]
     Active Substance: DEXAMETHASONE
     Dosage: 20 MG, UNK
     Route: 065
     Dates: start: 20180108, end: 20180109
  54. DEXAMETHASONE [Suspect]
     Active Substance: DEXAMETHASONE
     Dosage: 20 MG, UNK
     Route: 065
     Dates: start: 20180115, end: 20180116
  55. DEXAMETHASONE [Suspect]
     Active Substance: DEXAMETHASONE
     Dosage: 20 MG, UNK
     Route: 065
     Dates: start: 20180122, end: 20180123
  56. DEXAMETHASONE [Suspect]
     Active Substance: DEXAMETHASONE
     Dosage: 20 MG, UNK
     Route: 065
     Dates: start: 20180205, end: 20180206
  57. DEXAMETHASONE [Suspect]
     Active Substance: DEXAMETHASONE
     Dosage: 20 MG, UNK
     Route: 065
     Dates: start: 20180212, end: 20180213
  58. DEXAMETHASONE [Suspect]
     Active Substance: DEXAMETHASONE
     Dosage: 20 MG, UNK
     Route: 065
     Dates: start: 20180226, end: 20180227
  59. DEXAMETHASONE [Suspect]
     Active Substance: DEXAMETHASONE
     Dosage: 20 MG, UNK
     Route: 065
     Dates: start: 20180305, end: 20180306
  60. DEXAMETHASONE [Suspect]
     Active Substance: DEXAMETHASONE
     Dosage: 20 MG, UNK
     Route: 065
     Dates: start: 20180313, end: 20180314
  61. DEXAMETHASONE [Suspect]
     Active Substance: DEXAMETHASONE
     Dosage: 20 MG, UNK
     Route: 065
     Dates: start: 20180326, end: 20180327
  62. DEXAMETHASONE [Suspect]
     Active Substance: DEXAMETHASONE
     Dosage: 20 MG, UNK
     Route: 065
     Dates: start: 20180409, end: 20180410
  63. LENALIDOMIDE [Suspect]
     Active Substance: LENALIDOMIDE
     Indication: Plasma cell myeloma
     Dosage: 25 MG
     Route: 065
     Dates: start: 20170502, end: 20170814
  64. LENALIDOMIDE [Suspect]
     Active Substance: LENALIDOMIDE
     Dosage: 25 MG
     Route: 065
     Dates: start: 20170530
  65. LENALIDOMIDE [Suspect]
     Active Substance: LENALIDOMIDE
     Dosage: 25 MG
     Route: 065
     Dates: start: 20170627, end: 20170717
  66. LENALIDOMIDE [Suspect]
     Active Substance: LENALIDOMIDE
     Dosage: 25 MG
     Route: 065
     Dates: start: 20170725, end: 20170814
  67. LENALIDOMIDE [Suspect]
     Active Substance: LENALIDOMIDE
     Dosage: UNK
     Route: 065
  68. LENALIDOMIDE [Suspect]
     Active Substance: LENALIDOMIDE
     Dosage: UNK
     Route: 065
  69. REVLIMID [Suspect]
     Active Substance: LENALIDOMIDE
     Indication: Plasma cell myeloma
     Dosage: 25 MG
     Route: 048
  70. REVLIMID [Suspect]
     Active Substance: LENALIDOMIDE
     Dosage: 25 MG
     Route: 048
     Dates: start: 20170502, end: 20170814
  71. REVLIMID [Suspect]
     Active Substance: LENALIDOMIDE
     Dosage: UNK
     Route: 065
  72. REVLIMID [Suspect]
     Active Substance: LENALIDOMIDE
     Dosage: UNK
     Route: 065
  73. CLOTRIMAZOLE [Concomitant]
     Active Substance: CLOTRIMAZOLE
     Indication: Prophylaxis
     Dosage: UNK (99 UNK)
     Route: 065
     Dates: start: 20170719
  74. CLOTRIMAZOLE [Concomitant]
     Active Substance: CLOTRIMAZOLE
     Dosage: 99 UNK
     Route: 065
     Dates: start: 20170719
  75. CITALOPRAM [Concomitant]
     Active Substance: CITALOPRAM\CITALOPRAM HYDROBROMIDE
     Indication: Depression
     Dosage: 20 MG, QD
     Route: 065
     Dates: start: 2013
  76. CITALOPRAM [Concomitant]
     Active Substance: CITALOPRAM\CITALOPRAM HYDROBROMIDE
     Dosage: 20 MG, QD
     Route: 065
     Dates: start: 2013
  77. DEXAMETHASONE [Concomitant]
     Active Substance: DEXAMETHASONE
     Indication: Product used for unknown indication
     Dosage: 40 MG
     Route: 065
     Dates: start: 20171127, end: 20171128
  78. HYDROMORPHONHYDROCHLORID BETA [Concomitant]
     Dosage: 8 MG, QD
     Route: 065
     Dates: start: 2013
  79. HYDROMORPHONHYDROCHLORID BETA [Concomitant]
     Indication: Pain
     Dosage: 16 MG, QD
     Route: 065
     Dates: start: 2013
  80. HYDROMORPHONHYDROCHLORID BETA [Concomitant]
     Dosage: 8 MG, BID
     Route: 065
     Dates: start: 2013
  81. INNOHEP [Concomitant]
     Active Substance: TINZAPARIN SODIUM
     Indication: Prophylaxis
     Dosage: 0.9 ML,QD (0.9 ML, QD)
     Route: 065
     Dates: start: 20170615
  82. INNOHEP [Concomitant]
     Active Substance: TINZAPARIN SODIUM
     Dosage: 0.9 ML, QD
     Route: 065
     Dates: start: 20170615
  83. LOPERAMIDE HYDROCHLORIDE [Concomitant]
     Active Substance: LOPERAMIDE HYDROCHLORIDE
     Indication: Diarrhoea
     Dosage: 1 DF, PRN AS NECESSARY
     Route: 048
  84. LOPERAMIDE HYDROCHLORIDE [Concomitant]
     Active Substance: LOPERAMIDE HYDROCHLORIDE
     Dosage: 1 UNK AS NECESSARY
     Route: 048
     Dates: start: 20180213
  85. MIRTAZAPINE [Concomitant]
     Active Substance: MIRTAZAPINE
     Indication: Depression
     Dosage: 30 MG, QD
     Route: 065
     Dates: start: 2013
  86. MIRTAZAPINE [Concomitant]
     Active Substance: MIRTAZAPINE
     Dosage: 30 MG, QD
     Route: 065
     Dates: start: 2013
  87. PANTOPRAZOLE SODIUM [Concomitant]
     Active Substance: PANTOPRAZOLE SODIUM
     Indication: Prophylaxis
     Dosage: 40 UNK, QD
     Route: 065
     Dates: start: 2013
  88. PANTOPRAZOLE SODIUM [Concomitant]
     Active Substance: PANTOPRAZOLE SODIUM
     Dosage: 40 MG, QD
     Route: 065
     Dates: start: 2013
  89. ZOMETA [Concomitant]
     Active Substance: ZOLEDRONIC ACID
     Indication: Osteolysis
     Dosage: 4 MG, QMO
     Route: 065
     Dates: start: 20170330
  90. ZOMETA [Concomitant]
     Active Substance: ZOLEDRONIC ACID
     Dosage: 4 MG, QMO
     Route: 065
     Dates: start: 20170330

REACTIONS (5)
  - Leukopenia [Recovered/Resolved]
  - Neutropenia [Recovered/Resolved]
  - Thrombocytopenia [Recovered/Resolved]
  - Diarrhoea [Recovered/Resolved]
  - Lymphopenia [Recovered/Resolved]

NARRATIVE: CASE EVENT DATE: 20180205
